FAERS Safety Report 7296912-4 (Version None)
Quarter: 2011Q1

REPORT INFORMATION
  Report Type: 
  Country: None (occurrence: None)
  Receive Date: 20110216
  Receipt Date: 20110209
  Transmission Date: 20110831
  Serious: Yes (Hospitalization)
  Sender: FDA-Public Use
  Company Number: ES-JNJFOC-20110203938

PATIENT
  Age: 75 Year
  Sex: Male

DRUGS (3)
  1. RISPERDAL [Suspect]
     Indication: DEMENTIA
     Route: 048
  2. DEPRAX [Interacting]
     Indication: DEMENTIA
     Route: 048
  3. CLAVERSAL [Concomitant]
     Indication: DEPRESSION
     Route: 048

REACTIONS (2)
  - DRUG INTERACTION [None]
  - LOSS OF CONSCIOUSNESS [None]
